FAERS Safety Report 6997673-6 (Version None)
Quarter: 2010Q3

REPORT INFORMATION
  Report Type: 
  Country: None (occurrence: None)
  Receive Date: 20100918
  Receipt Date: 20091107
  Transmission Date: 20110219
  Serious: Yes (Other)
  Sender: FDA-Public Use
  Company Number: US-WYE-H12101909

PATIENT
  Age: 81 Year
  Sex: Male

DRUGS (7)
  1. TORISEL [Suspect]
     Indication: RENAL CELL CARCINOMA
     Route: 042
     Dates: start: 20090305, end: 20090409
  2. TORISEL [Suspect]
     Route: 042
     Dates: start: 20090515, end: 20090715
  3. LOVASTATIN [Concomitant]
  4. FLOMAX [Concomitant]
  5. HYDROCHLOROTHIAZIDE [Concomitant]
     Dosage: 12 .5 MG (FREQUENCY NOT PROVIDED)
  6. ACETYLSALICYLIC ACID [Concomitant]
  7. AMLODIPINE [Concomitant]

REACTIONS (2)
  - BLOOD CREATININE INCREASED [None]
  - NEPHROPATHY TOXIC [None]
